FAERS Safety Report 12218273 (Version 2)
Quarter: 2016Q4

REPORT INFORMATION
  Report Type: Report from Study
  Country: US (occurrence: US)
  Receive Date: 20160329
  Receipt Date: 20161108
  Transmission Date: 20170207
  Serious: No
  Sender: FDA-Public Use
  Company Number: PHHY2016US036014

PATIENT
  Age: 52 Year
  Sex: Female

DRUGS (21)
  1. KETAMINE [Suspect]
     Active Substance: KETAMINE
     Dosage: 150.17 UG (CONCENTRATION 500 UG/ML), QD
     Route: 037
     Dates: start: 20140715, end: 20140731
  2. DILAUDID [Suspect]
     Active Substance: HYDROMORPHONE HYDROCHLORIDE
     Dosage: 0.35022 MG (CONCENTRATION 0.5 MG/ML), QD
     Route: 037
     Dates: start: 20140805
  3. KETAMINE [Suspect]
     Active Substance: KETAMINE
     Indication: PRODUCT USED FOR UNKNOWN INDICATION
     Dosage: 100.1 UG (CONCENTRATION 500 UG/ML), QD
     Route: 037
     Dates: start: 20140710, end: 20140715
  4. BACLOFEN. [Suspect]
     Active Substance: BACLOFEN
     Dosage: 420.26 UG (CONCENTRATION 600 UG/ML), QD
     Route: 037
     Dates: start: 20140805
  5. DILAUDID [Suspect]
     Active Substance: HYDROMORPHONE HYDROCHLORIDE
     Dosage: 0.30034 MG (CONCENTRATION 0.5 MG/ML), QD
     Route: 037
     Dates: start: 20140731, end: 20140805
  6. OXYMORPHONE//OXYMORPHONE HYDROCHLORIDE [Concomitant]
     Indication: PRODUCT USED FOR UNKNOWN INDICATION
     Route: 065
  7. DESIPRAMINE [Concomitant]
     Active Substance: DESIPRAMINE
     Indication: PRODUCT USED FOR UNKNOWN INDICATION
     Route: 065
  8. CLONIDINE. [Suspect]
     Active Substance: CLONIDINE
     Indication: PRODUCT USED FOR UNKNOWN INDICATION
     Dosage: 120.14 UG (CONCENTRATION 200 UG/ML), QD
     Route: 037
     Dates: start: 20140731, end: 20140805
  9. CLONIDINE. [Suspect]
     Active Substance: CLONIDINE
     Dosage: 140.09 UG (CONCENTRATION 200 UG/ML), QD
     Route: 037
     Dates: start: 20140805
  10. BUPIVACAINE. [Suspect]
     Active Substance: BUPIVACAINE
     Indication: PRODUCT USED FOR UNKNOWN INDICATION
     Dosage: 4 MG (CONCENTRATION 20 MG/ML), QD
     Route: 037
     Dates: start: 20140710, end: 20140715
  11. DILAUDID [Suspect]
     Active Substance: HYDROMORPHONE HYDROCHLORIDE
     Dosage: 0.15017 MG (CONCENTRATION 0.5 MG/ML), QD
     Route: 037
     Dates: start: 20140715, end: 20140731
  12. KETAMINE [Suspect]
     Active Substance: KETAMINE
     Dosage: 360.41 UG (CONCENTRATION 600 UG/ML), QD
     Route: 037
     Dates: start: 20140731, end: 20140805
  13. BUPIVACAINE. [Suspect]
     Active Substance: BUPIVACAINE
     Dosage: 18.021 MG (CONCENTRATION 30 MG/ML), QD
     Route: 037
     Dates: start: 20140731, end: 20140805
  14. DILAUDID [Suspect]
     Active Substance: HYDROMORPHONE HYDROCHLORIDE
     Indication: PRODUCT USED FOR UNKNOWN INDICATION
     Dosage: 0.10001 MG (CONCENTRATION 0.5 MG/ML), QD
     Route: 037
     Dates: start: 20140710, end: 20140715
  15. BUPIVACAINE. [Suspect]
     Active Substance: BUPIVACAINE
     Dosage: 21.013 MG (CONCENTRATION 30 MG/ML), QD
     Route: 037
     Dates: start: 20140805
  16. NEURONTIN [Concomitant]
     Active Substance: GABAPENTIN
     Indication: PRODUCT USED FOR UNKNOWN INDICATION
     Route: 065
  17. BACLOFEN. [Suspect]
     Active Substance: BACLOFEN
     Dosage: 360.41 UG (CONCENTRATION 600 UG/ML), QD
     Route: 037
     Dates: start: 20140731, end: 20140805
  18. KETAMINE [Suspect]
     Active Substance: KETAMINE
     Dosage: 420.26 UG (CONCENTREATION 600 UG/ML), QD
     Route: 037
     Dates: start: 20140805
  19. BACLOFEN. [Suspect]
     Active Substance: BACLOFEN
     Indication: CANCER PAIN
     Dosage: 60.01 UG (CONCENTRATION 300 UG/ML), QD
     Route: 037
     Dates: start: 20140710, end: 20140715
  20. BACLOFEN. [Suspect]
     Active Substance: BACLOFEN
     Indication: BACK PAIN
     Dosage: 90.10 UG (CONCENTRATION 300 UG/ML), QD
     Route: 037
     Dates: start: 20140715, end: 20140731
  21. BUPIVACAINE. [Suspect]
     Active Substance: BUPIVACAINE
     Dosage: 6.007 MG (CONCENTRATION 20 MG/ML), QD
     Route: 037
     Dates: start: 20140715, end: 20140731

REACTIONS (10)
  - Adverse drug reaction [Recovered/Resolved]
  - Pain in extremity [Recovered/Resolved]
  - Asthenia [Not Recovered/Not Resolved]
  - Anal incontinence [Recovered/Resolved]
  - Nausea [Recovered/Resolved]
  - Pain [Recovered/Resolved]
  - Oedema peripheral [Not Recovered/Not Resolved]
  - Frequent bowel movements [Recovered/Resolved]
  - Hypoaesthesia [Recovered/Resolved]
  - Somnolence [Not Recovered/Not Resolved]

NARRATIVE: CASE EVENT DATE: 20140715
